FAERS Safety Report 5399265-1 (Version None)
Quarter: 2007Q3

REPORT INFORMATION
  Report Type: 
  Country: None (occurrence: None)
  Receive Date: 20070727
  Receipt Date: 20070725
  Transmission Date: 20080115
  Serious: Yes (Other)
  Sender: FDA-Public Use
  Company Number: B0476204A

PATIENT
  Age: 82 Year
  Sex: Male

DRUGS (6)
  1. AVANDIA [Suspect]
     Indication: DRUG USE FOR UNKNOWN INDICATION
     Dosage: 4MG PER DAY
     Route: 048
     Dates: start: 20070313
  2. PERINDOPRIL ERBUMINE [Concomitant]
  3. NIFEDIPINE [Concomitant]
  4. PROGOUT [Concomitant]
  5. GLIMEPIRIDE [Concomitant]
  6. LIPITOR [Concomitant]

REACTIONS (3)
  - CONJUNCTIVAL HAEMORRHAGE [None]
  - EYE HAEMORRHAGE [None]
  - OCULAR HYPERAEMIA [None]
